FAERS Safety Report 7727857-0 (Version None)
Quarter: 2011Q3

REPORT INFORMATION
  Report Type: 
  Country: None (occurrence: None)
  Receive Date: 20110905
  Receipt Date: 20110826
  Transmission Date: 20111222
  Serious: No
  Sender: FDA-Public Use
  Company Number: US-BIOGENIDEC-2011BI015698

PATIENT
  Sex: Female

DRUGS (1)
  1. TYSABRI [Suspect]
     Indication: MULTIPLE SCLEROSIS
     Route: 042
     Dates: start: 20110211

REACTIONS (6)
  - BUNION [None]
  - CONTUSION [None]
  - DRY EYE [None]
  - POOR VENOUS ACCESS [None]
  - VISUAL IMPAIRMENT [None]
  - HEADACHE [None]
